FAERS Safety Report 8476318-2 (Version None)
Quarter: 2012Q2

REPORT INFORMATION
  Report Type: 
  Country: None (occurrence: None)
  Receive Date: 20120619
  Receipt Date: 20120611
  Transmission Date: 20120825
  Serious: Yes (Hospitalization)
  Sender: FDA-Public Use
  Company Number: 2012SP031759

PATIENT

DRUGS (2)
  1. CELESTAMINE TAB [Suspect]
     Indication: ATOPY
     Dosage: PO
     Route: 048
     Dates: start: 20120602, end: 20120605
  2. OLOPATADINE HYDROCHLORIDE [Suspect]
     Indication: ATOPY
     Dosage: PO
     Route: 048
     Dates: start: 20120602, end: 20120605

REACTIONS (2)
  - PYREXIA [None]
  - C-REACTIVE PROTEIN INCREASED [None]
